FAERS Safety Report 11406178 (Version 1)
Quarter: 2015Q3

REPORT INFORMATION
  Report Type: Spontaneous
  Country: US (occurrence: US)
  Receive Date: 20150821
  Receipt Date: 20150821
  Transmission Date: 20151125
  Serious: No
  Sender: FDA-Public Use
  Company Number: US-TARO-2014TAR00667

PATIENT
  Age: 69 Year
  Sex: Female

DRUGS (1)
  1. ATHLETES FOOT NOS [Suspect]
     Active Substance: MICONAZOLE NITRATE OR TERBINAFINE HYDROCHLORIDE OR TOLNAFTATE
     Indication: TINEA PEDIS
     Dosage: UNK UNK, 2X/DAY
     Route: 061
     Dates: start: 20141222, end: 20141228

REACTIONS (3)
  - Burning sensation [Recovered/Resolved]
  - Application site vesicles [Recovered/Resolved]
  - Erythema [Recovering/Resolving]

NARRATIVE: CASE EVENT DATE: 20141222
